FAERS Safety Report 19047447 (Version 2)
Quarter: 2021Q1

REPORT INFORMATION
  Report Type: Other
  Country: US (occurrence: US)
  Receive Date: 20210323
  Receipt Date: 20210325
  Transmission Date: 20210420
  Serious: No
  Sender: FDA-Public Use
  Company Number: US-ROCHE-2792858

PATIENT
  Sex: Male
  Weight: 109.41 kg

DRUGS (2)
  1. OCREVUS [Suspect]
     Active Substance: OCRELIZUMAB
     Indication: RELAPSING MULTIPLE SCLEROSIS
     Dosage: ONGOING: NO?16/AUG/2016, 12/JUL/2017, 03/AUG/2017, 15/FEB/2018, 16/AUG/2018, 25/FEB/2019, 23/SEP/201
     Route: 065
     Dates: start: 20170720
  2. TYSABRI [Concomitant]
     Active Substance: NATALIZUMAB

REACTIONS (1)
  - COVID-19 [Recovered/Resolved]

NARRATIVE: CASE EVENT DATE: 2021
